FAERS Safety Report 13422181 (Version 1)
Quarter: 2017Q2

REPORT INFORMATION
  Report Type: Spontaneous
  Country: US (occurrence: US)
  Receive Date: 20170407
  Receipt Date: 20170407
  Transmission Date: 20170830
  Serious: Yes (Disabling)
  Sender: FDA-Public Use
  Company Number: None

PATIENT
  Age: 78 Year
  Sex: Female
  Weight: 90 kg

DRUGS (25)
  1. OCUVITE [Concomitant]
     Active Substance: VITAMINS
  2. PREVACID [Concomitant]
     Active Substance: LANSOPRAZOLE
  3. CIPRO [Suspect]
     Active Substance: CIPROFLOXACIN HYDROCHLORIDE
     Indication: URINARY TRACT INFECTION
     Dates: start: 20080101, end: 20170407
  4. LUMIGAN [Concomitant]
     Active Substance: BIMATOPROST
  5. GENTEAL EYE DROPS [Concomitant]
  6. ALLEGRA [Concomitant]
     Active Substance: FEXOFENADINE HYDROCHLORIDE
  7. NEURONTIN [Concomitant]
     Active Substance: GABAPENTIN
  8. TOVIAZ [Concomitant]
     Active Substance: FESOTERODINE FUMARATE
  9. METOPROLOL. [Concomitant]
     Active Substance: METOPROLOL
  10. ATORVASTATIN [Concomitant]
     Active Substance: ATORVASTATIN
  11. VITAMIN C [Concomitant]
     Active Substance: ASCORBIC ACID
  12. CALCET + D3 [Concomitant]
  13. CENTRUM SILVER [Concomitant]
     Active Substance: MINERALS\VITAMINS
  14. VITAMIN B12 [Concomitant]
     Active Substance: CYANOCOBALAMIN
  15. COLON HEALTH [Concomitant]
  16. CRANBERRY. [Concomitant]
     Active Substance: CRANBERRY
  17. BENTL [Concomitant]
  18. GINKO BILOBA [Concomitant]
     Active Substance: GINKGO
  19. ALPHA LIPOIC ACID [Concomitant]
     Active Substance: .ALPHA.-LIPOIC ACID
  20. SYMBRINZA EYE DROPS [Concomitant]
  21. LEVOTHYROXINE. [Concomitant]
     Active Substance: LEVOTHYROXINE
  22. XANAZ [Concomitant]
  23. FENOFIBRIC ACID. [Concomitant]
     Active Substance: FENOFIBRIC ACID
  24. VLERIAN ROOT [Concomitant]
  25. WARFARIN [Concomitant]
     Active Substance: WARFARIN

REACTIONS (24)
  - Drug ineffective [None]
  - Peripheral swelling [None]
  - Neuropathy peripheral [None]
  - Musculoskeletal pain [None]
  - Arthralgia [None]
  - Speech disorder [None]
  - Dysstasia [None]
  - Depression [None]
  - Confusional state [None]
  - Tremor [None]
  - Myalgia [None]
  - Hallucination [None]
  - Talipes [None]
  - Asthenia [None]
  - Joint swelling [None]
  - Blood glucose abnormal [None]
  - Visual impairment [None]
  - Tendonitis [None]
  - Social avoidant behaviour [None]
  - Impaired self-care [None]
  - Tendon rupture [None]
  - Insomnia [None]
  - Psychotic disorder [None]
  - Emotional disorder [None]

NARRATIVE: CASE EVENT DATE: 20170101
